FAERS Safety Report 5347209-0 (Version None)
Quarter: 2007Q2

REPORT INFORMATION
  Report Type: 
  Country: None (occurrence: None)
  Receive Date: 20070509
  Receipt Date: 20060920
  Transmission Date: 20071010
  Serious: Yes (Hospitalization)
  Sender: FDA-Public Use
  Company Number: PHEH2006US12021

PATIENT
  Age: 44 Year
  Sex: Female

DRUGS (1)
  1. TEGRETOL [Suspect]

REACTIONS (1)
  - LEUKOPENIA [None]
